FAERS Safety Report 22763060 (Version 4)
Quarter: 2023Q4

REPORT INFORMATION
  Report Type: Spontaneous
  Country: JP (occurrence: JP)
  Receive Date: 20230729
  Receipt Date: 20231012
  Transmission Date: 20240109
  Serious: Yes (Death, Other)
  Sender: FDA-Public Use
  Company Number: JP-UNITED THERAPEUTICS-UNT-2023-020406

PATIENT
  Age: 64 Year
  Sex: Male
  Weight: 71 kg

DRUGS (16)
  1. TYVASO [Suspect]
     Active Substance: TREPROSTINIL
     Indication: Pulmonary hypertension
     Dosage: 18 ?G, QID
     Dates: start: 20230630, end: 20230706
  2. TYVASO [Suspect]
     Active Substance: TREPROSTINIL
     Dosage: 36 ?G, QID
     Dates: start: 20230707, end: 20230717
  3. TYVASO [Suspect]
     Active Substance: TREPROSTINIL
     Dosage: 54 ?G, QID
     Dates: start: 20230718
  4. OFEV [Concomitant]
     Active Substance: NINTEDANIB
     Indication: Pulmonary hypertension
     Dosage: 300 MG, QD
     Route: 065
  5. REVATIO [Concomitant]
     Active Substance: SILDENAFIL CITRATE
     Indication: Pulmonary hypertension
     Dosage: 60 MG, QD
     Route: 065
     Dates: end: 20230724
  6. OPSUMIT [Concomitant]
     Active Substance: MACITENTAN
     Indication: Pulmonary hypertension
     Dosage: 10 MG, QD
     Route: 065
     Dates: end: 20230724
  7. UPTRAVI [Concomitant]
     Active Substance: SELEXIPAG
     Indication: Pulmonary hypertension
     Dosage: 3.2 MG, QD
     Route: 065
     Dates: end: 20230628
  8. UPTRAVI [Concomitant]
     Active Substance: SELEXIPAG
     Dosage: 2.4 MG, QD
     Route: 065
     Dates: start: 20230629, end: 20230702
  9. UPTRAVI [Concomitant]
     Active Substance: SELEXIPAG
     Dosage: 2 MG, QD
     Route: 065
     Dates: start: 20230703, end: 20230706
  10. UPTRAVI [Concomitant]
     Active Substance: SELEXIPAG
     Dosage: 1.6 MG, QD
     Route: 065
     Dates: start: 20230707, end: 20230710
  11. UPTRAVI [Concomitant]
     Active Substance: SELEXIPAG
     Dosage: 1.2 MG, QD
     Route: 065
     Dates: start: 20230711, end: 20230713
  12. UPTRAVI [Concomitant]
     Active Substance: SELEXIPAG
     Dosage: 0.8 MG, QD
     Route: 065
     Dates: start: 20230714, end: 20230718
  13. UPTRAVI [Concomitant]
     Active Substance: SELEXIPAG
     Dosage: 0.4 MG, QD
     Route: 065
     Dates: start: 20230719, end: 20230720
  14. UPTRAVI [Concomitant]
     Active Substance: SELEXIPAG
     Dosage: 0.8 MG, QD
     Route: 065
     Dates: start: 20230721
  15. CELLCEPT [Concomitant]
     Active Substance: MYCOPHENOLATE MOFETIL
     Indication: Product used for unknown indication
     Dosage: 1000 MG, QD
     Route: 065
  16. PREDONINE [Concomitant]
     Active Substance: PREDNISOLONE
     Indication: Product used for unknown indication
     Dosage: 9 MG, QD
     Route: 065

REACTIONS (3)
  - Pulmonary arterial hypertension [Fatal]
  - Choking [Recovered/Resolved]
  - Oxygen saturation decreased [Recovered/Resolved]

NARRATIVE: CASE EVENT DATE: 20230713
